FAERS Safety Report 6417942-8 (Version None)
Quarter: 2009Q4

REPORT INFORMATION
  Report Type: 
  Country: None (occurrence: None)
  Receive Date: 20091028
  Receipt Date: 20091022
  Transmission Date: 20100525
  Serious: Yes (Hospitalization)
  Sender: FDA-Public Use
  Company Number: CHPA2009US20861

PATIENT
  Age: 92 Year
  Sex: Female

DRUGS (2)
  1. BENEFIBER SUGAR FREE (NCH) [Suspect]
     Indication: NUTRITIONAL SUPPORT
     Dosage: 2 DF, BID
     Route: 048
     Dates: start: 20090101, end: 20091021
  2. BENEFIBER SUGAR FREE (NCH) [Suspect]
     Indication: IRRITABLE BOWEL SYNDROME

REACTIONS (9)
  - ABDOMINAL DISCOMFORT [None]
  - ABDOMINAL DISTENSION [None]
  - ABDOMINAL PAIN [None]
  - CONDITION AGGRAVATED [None]
  - INSOMNIA [None]
  - INTESTINAL FUNCTIONAL DISORDER [None]
  - NAUSEA [None]
  - PAIN [None]
  - WEIGHT DECREASED [None]
